FAERS Safety Report 4736347-9 (Version None)
Quarter: 2005Q3

REPORT INFORMATION
  Report Type: 
  Country: None (occurrence: None)
  Receive Date: 20050808
  Receipt Date: 20050726
  Transmission Date: 20060218
  Serious: Yes (Hospitalization)
  Sender: FDA-Public Use
  Company Number: 2005AP04258

PATIENT
  Age: 20412 Day
  Sex: Male

DRUGS (5)
  1. QUETIAPINE FUMARATE [Suspect]
     Route: 048
  2. CLOZARIL [Suspect]
     Indication: SCHIZOPHRENIA
     Route: 048
  3. CLOZARIL [Suspect]
     Route: 048
  4. VALIUM [Suspect]
  5. EFFEXOR [Suspect]
     Route: 048

REACTIONS (8)
  - DIARRHOEA [None]
  - HEPATIC ENZYME INCREASED [None]
  - LEUKOCYTOSIS [None]
  - NEUTROPHILIA [None]
  - PSYCHOTIC DISORDER [None]
  - TARDIVE DYSKINESIA [None]
  - TREATMENT NONCOMPLIANCE [None]
  - VOMITING [None]
